FAERS Safety Report 8684192 (Version 4)
Quarter: 2013Q3

REPORT INFORMATION
  Report Type: Spontaneous
  Country: US (occurrence: US)
  Receive Date: 20120726
  Receipt Date: 20130920
  Transmission Date: 20140515
  Serious: No
  Sender: FDA-Public Use
  Company Number: US-ASTRAZENECA-2008UW26035

PATIENT
  Age: 41 Year
  Sex: Female

DRUGS (7)
  1. SEROQUEL [Suspect]
     Route: 048
  2. SEROQUEL [Suspect]
     Dosage: 1 IN THE MORNING AND 2 AT NIGHT
     Route: 048
  3. SEROQUEL [Suspect]
     Route: 048
  4. SEROQUEL [Suspect]
     Dosage: 2 IN MORNING AND 2 IN EVENING
     Route: 048
  5. ZOMIG [Suspect]
     Indication: MIGRAINE
     Route: 048
  6. THYROID MEDICATION [Suspect]
     Route: 065
  7. EXCEDRIN [Concomitant]

REACTIONS (12)
  - Insomnia [Unknown]
  - Withdrawal syndrome [Unknown]
  - Migraine [Unknown]
  - Nervousness [Unknown]
  - Mental disorder [Unknown]
  - Bipolar disorder [Unknown]
  - Nasopharyngitis [Unknown]
  - Vomiting [Unknown]
  - Drug dose omission [Unknown]
  - Drug prescribing error [Unknown]
  - Intentional drug misuse [Unknown]
  - Drug ineffective [Unknown]
